FAERS Safety Report 12919424 (Version 4)
Quarter: 2022Q1

REPORT INFORMATION
  Report Type: Report from Study
  Country: CN (occurrence: None)
  Receive Date: 20161108
  Receipt Date: 20220322
  Transmission Date: 20220423
  Serious: Yes (Hospitalization)
  Sender: FDA-Public Use
  Company Number: CN-ROCHE-1845823

PATIENT
  Age: 50 Year
  Sex: Female
  Weight: 53 kg

DRUGS (42)
  1. PLACEBO [Suspect]
     Active Substance: UNSPECIFIED INGREDIENT
     Indication: HER2 positive breast cancer
     Dosage: LOADING DOSE, CYCLE 1
     Route: 042
     Dates: start: 20160615, end: 20160615
  2. PLACEBO [Suspect]
     Active Substance: UNSPECIFIED INGREDIENT
     Dosage: DATE OF MOST RECENT DOSE OF PLACEBO PRIOR TO EVENT CHEST TIGHTNESS IN DISPUTE: 17/AUG/2016, CYCLE 2-
     Route: 042
  3. TRASTUZUMAB [Suspect]
     Active Substance: TRASTUZUMAB
     Indication: HER2 positive breast cancer
     Dosage: LOADING DOSE ?440 MG
     Route: 042
     Dates: start: 20160615, end: 20160615
  4. TRASTUZUMAB [Suspect]
     Active Substance: TRASTUZUMAB
     Dosage: DATE OF MOST RECENT DOSE OF TRASTUZUMAB PRIOR TO EVENT CHEST TIGHTNESS IN DISPUTE:17/AUG/2016
     Route: 042
  5. DOCETAXEL [Suspect]
     Active Substance: DOCETAXEL
     Indication: HER2 positive breast cancer
     Dosage: DATE OF MOST RECENT DOSE OF DOCETAXEL PRIOR TO EVENT CHEST TIGHTNESS IN DISPUTE: 17/AUG/2016
     Route: 042
     Dates: start: 20160615
  6. FLUOROURACIL [Suspect]
     Active Substance: FLUOROURACIL
     Indication: HER2 positive breast cancer
     Dosage: DATE OF MOST RECENT DOSE OF 5-FLUOROURACIL (780 MG) PRIOR TO EVENT CHEST TIGHTNESS IN DISPUTE: 19/OC
     Route: 042
     Dates: start: 20160928
  7. EPIRUBICIN HYDROCHLORIDE [Suspect]
     Active Substance: EPIRUBICIN HYDROCHLORIDE
     Indication: HER2 positive breast cancer
     Dosage: DATE OF MOST RECENT DOSE OF EPIRUBICIN (140 MG) PRIOR TO EVENT CHEST TIGHTNESS IN DISPUTE: 19/OCT/20
     Route: 042
     Dates: start: 20160928
  8. CYCLOPHOSPHAMIDE [Suspect]
     Active Substance: CYCLOPHOSPHAMIDE
     Indication: HER2 positive breast cancer
     Dosage: DATE OF MOST RECENT DOSE OF CYCLOPHOSPHAMIDE (780 MG) PRIOR TO EVENT CHEST TIGHTNESS IN DISPUTE: 19/
     Route: 042
     Dates: start: 20160928
  9. CALCIUM CHLORIDE\POTASSIUM CHLORIDE\SODIUM CHLORIDE [Concomitant]
     Active Substance: CALCIUM CHLORIDE\POTASSIUM CHLORIDE\SODIUM CHLORIDE
     Dates: start: 20160912, end: 20160920
  10. GANGLIOSIDE GM1 [Concomitant]
     Active Substance: GANGLIOSIDE GM1
     Dates: start: 20160912, end: 20160920
  11. FRUCTOSE DIPHOSPHATE SODIUM [Concomitant]
     Dates: start: 20160912, end: 20160920
  12. BUDESONIDE [Concomitant]
     Active Substance: BUDESONIDE
     Dates: start: 20160913, end: 20160920
  13. IPRATROPIUM BROMIDE [Concomitant]
     Active Substance: IPRATROPIUM BROMIDE
     Dates: start: 20160913, end: 20160920
  14. SODIUM CHLORIDE [Concomitant]
     Active Substance: SODIUM CHLORIDE
     Dates: start: 20160913, end: 20160920
  15. DEXAMETHASONE SODIUM PHOSPHATE [Concomitant]
     Active Substance: DEXAMETHASONE SODIUM PHOSPHATE
     Dates: start: 20160928, end: 20160928
  16. DEXAMETHASONE SODIUM PHOSPHATE [Concomitant]
     Active Substance: DEXAMETHASONE SODIUM PHOSPHATE
     Dates: start: 20161019, end: 20161019
  17. DIPHENHYDRAMINE HYDROCHLORIDE [Concomitant]
     Active Substance: DIPHENHYDRAMINE HYDROCHLORIDE
     Dates: start: 20160928, end: 20160928
  18. CIMETIDINE [Concomitant]
     Active Substance: CIMETIDINE
     Dates: start: 20160928, end: 20160928
  19. PALONOSETRON HYDROCHLORIDE [Concomitant]
     Active Substance: PALONOSETRON HYDROCHLORIDE
     Dates: start: 20160928, end: 20160928
  20. PALONOSETRON HYDROCHLORIDE [Concomitant]
     Active Substance: PALONOSETRON HYDROCHLORIDE
     Dates: start: 20161019, end: 20161019
  21. ONDANSETRON HYDROCHLORIDE [Concomitant]
     Active Substance: ONDANSETRON HYDROCHLORIDE
     Dates: start: 20160928, end: 20160928
  22. ONDANSETRON HYDROCHLORIDE [Concomitant]
     Active Substance: ONDANSETRON HYDROCHLORIDE
     Dates: start: 20161019, end: 20161019
  23. AMIFOSTINE [Concomitant]
     Active Substance: AMIFOSTINE
     Dates: start: 20160928, end: 20160928
  24. AMIFOSTINE [Concomitant]
     Active Substance: AMIFOSTINE
     Dates: start: 20161019, end: 20161019
  25. ESOMEPRAZOLE [Concomitant]
     Active Substance: ESOMEPRAZOLE
     Dates: start: 20160928, end: 20160928
  26. ESOMEPRAZOLE [Concomitant]
     Active Substance: ESOMEPRAZOLE
     Dates: start: 20160929, end: 20160929
  27. ESOMEPRAZOLE [Concomitant]
     Active Substance: ESOMEPRAZOLE
     Dates: start: 20161019, end: 20161019
  28. ESOMEPRAZOLE [Concomitant]
     Active Substance: ESOMEPRAZOLE
     Dates: start: 20161020, end: 20161020
  29. GLUTATHIONE [Concomitant]
     Active Substance: GLUTATHIONE
     Dosage: REDUCED GLUTATHIONE FOR INJECTION
     Dates: start: 20160928, end: 20160928
  30. GLUTATHIONE [Concomitant]
     Active Substance: GLUTATHIONE
     Dates: start: 20161019, end: 20161019
  31. GLUTATHIONE [Concomitant]
     Active Substance: GLUTATHIONE
     Dates: start: 20160912, end: 20160920
  32. DEXRAZOXANE [Concomitant]
     Active Substance: DEXRAZOXANE
     Dates: start: 20160928, end: 20160928
  33. DEXRAZOXANE [Concomitant]
     Active Substance: DEXRAZOXANE
     Dates: start: 20161019, end: 20161019
  34. APREPITANT [Concomitant]
     Active Substance: APREPITANT
     Dates: start: 20160928, end: 20160930
  35. APREPITANT [Concomitant]
     Active Substance: APREPITANT
     Dates: start: 20161019, end: 20161021
  36. CALCIUM GLUCONATE [Concomitant]
     Active Substance: CALCIUM GLUCONATE
     Dates: start: 20160928, end: 20160928
  37. CALCIUM GLUCONATE [Concomitant]
     Active Substance: CALCIUM GLUCONATE
     Dates: start: 20161019, end: 20161019
  38. PEGFILGRASTIM [Concomitant]
     Active Substance: PEGFILGRASTIM
     Dates: start: 20160930, end: 20160930
  39. PEGFILGRASTIM [Concomitant]
     Active Substance: PEGFILGRASTIM
     Dates: start: 20161020, end: 20161020
  40. ADENOSINE PHOSPHATE [Concomitant]
     Active Substance: ADENOSINE PHOSPHATE
     Dosage: CYCLIC
     Dates: start: 20161020, end: 20161020
  41. LEVOCARNITINE [Concomitant]
     Active Substance: LEVOCARNITINE
     Dates: start: 20161021, end: 20161023
  42. DEXAMETHASONE ACETATE [Concomitant]
     Active Substance: DEXAMETHASONE ACETATE
     Dates: start: 20161018, end: 20161019

REACTIONS (1)
  - Chest discomfort [Recovered/Resolved]

NARRATIVE: CASE EVENT DATE: 20161019
